FAERS Safety Report 12933433 (Version 1)
Quarter: 2016Q4

REPORT INFORMATION
  Report Type: Spontaneous
  Country: US (occurrence: US)
  Receive Date: 20161111
  Receipt Date: 20161111
  Transmission Date: 20170207
  Serious: Yes (Hospitalization, Other)
  Sender: FDA-Public Use
  Company Number: US-MYLANLABS-2016M1048838

PATIENT

DRUGS (1)
  1. METHOTREXATE. [Suspect]
     Active Substance: METHOTREXATE
     Indication: PRODUCT USED FOR UNKNOWN INDICATION
     Dosage: WEEKLY 80 MG FOR 10 YEARS
     Route: 042

REACTIONS (5)
  - Muscular weakness [Not Recovered/Not Resolved]
  - Dysphagia [Recovering/Resolving]
  - Toxicity to various agents [Recovering/Resolving]
  - Dysarthria [Not Recovered/Not Resolved]
  - Neurotoxicity [Recovering/Resolving]
